FAERS Safety Report 5083979-7 (Version None)
Quarter: 2006Q3

REPORT INFORMATION
  Report Type: 
  Country: None (occurrence: None)
  Receive Date: 20060727
  Receipt Date: 20060501
  Transmission Date: 20061208
  Serious: Yes (Other)
  Sender: FDA-Public Use
  Company Number: 2006059140

PATIENT
  Age: 67 Year
  Sex: Female
  Weight: 56.246 kg

DRUGS (3)
  1. LYRICA [Suspect]
     Indication: NEUROPATHY
     Dosage: 150 MG (50 MG, 3 IN 1 D)
     Dates: start: 20060425
  2. LYRICA [Suspect]
     Indication: PAIN
     Dosage: 150 MG (50 MG, 3 IN 1 D)
     Dates: start: 20060425
  3. CLONOPIN [Concomitant]

REACTIONS (2)
  - DRY MOUTH [None]
  - SOMNOLENCE [None]
